APPROVED DRUG PRODUCT: ZYFLO
Active Ingredient: ZILEUTON
Strength: 600MG
Dosage Form/Route: TABLET;ORAL
Application: N020471 | Product #003
Applicant: CHIESI USA INC
Approved: Dec 9, 1996 | RLD: Yes | RS: No | Type: DISCN